FAERS Safety Report 4279563-5 (Version None)
Quarter: 2004Q1

REPORT INFORMATION
  Report Type: 
  Country: None (occurrence: None)
  Receive Date: 20040123
  Receipt Date: 20040115
  Transmission Date: 20041129
  Serious: Yes (Other)
  Sender: FDA-Public Use
  Company Number: 2004-01-0669

PATIENT
  Sex: Male

DRUGS (1)
  1. NASONEX [Suspect]
     Indication: HOUSE DUST ALLERGY
     Dosage: 2 SPRAYS BID NASAL SPRAY
     Route: 045
     Dates: start: 20031224, end: 20040113

REACTIONS (1)
  - MENINGOCOCCAL INFECTION [None]
